FAERS Safety Report 4454546-0 (Version None)
Quarter: 2004Q3

REPORT INFORMATION
  Report Type: 
  Country: None (occurrence: None)
  Receive Date: 20040917
  Receipt Date: 20040917
  Transmission Date: 20050211
  Serious: Yes (Life-Threatening, Hospitalization)
  Sender: FDA-Public Use
  Company Number: None

PATIENT
  Sex: Female
  Weight: 64.3 kg

DRUGS (1)
  1. POLYGAM [Suspect]
     Indication: DERMATOMYOSITIS
     Dosage: 130 GMS Q MONTH INTRAVENOUS
     Route: 042
     Dates: start: 20040915, end: 20040916

REACTIONS (2)
  - CHEST PAIN [None]
  - PAIN IN EXTREMITY [None]
